FAERS Safety Report 19763311 (Version 1)
Quarter: 2021Q3

REPORT INFORMATION
  Report Type: Spontaneous
  Country: CN (occurrence: CN)
  Receive Date: 20210830
  Receipt Date: 20210830
  Transmission Date: 20211014
  Serious: Yes (Hospitalization)
  Sender: FDA-Public Use
  Company Number: NVSC2021CN194700

PATIENT
  Age: 52 Year
  Sex: Female
  Weight: 43.7 kg

DRUGS (6)
  1. DIOVAN [Suspect]
     Active Substance: VALSARTAN
     Indication: CHRONIC KIDNEY DISEASE
     Dosage: 80 MG, QD
     Route: 048
     Dates: start: 20210409, end: 20210823
  2. ROXADUSTAT. [Concomitant]
     Active Substance: ROXADUSTAT
     Indication: CHRONIC KIDNEY DISEASE
     Dosage: 70 MG, TIW, (7 PER DAY)
     Route: 048
     Dates: start: 20210409, end: 20210823
  3. FAMOTIDINE. [Concomitant]
     Active Substance: FAMOTIDINE
     Indication: ABDOMINAL DISCOMFORT
     Dosage: UNK
     Route: 065
  4. CALCIUM CARBONATE. [Concomitant]
     Active Substance: CALCIUM CARBONATE
     Indication: CHRONIC KIDNEY DISEASE
     Dosage: 1.5 G, BID
     Route: 048
     Dates: start: 20210409, end: 20210823
  5. CALCITRIOL. [Concomitant]
     Active Substance: CALCITRIOL
     Indication: CHRONIC KIDNEY DISEASE
     Dosage: 0.25 UG, QD
     Route: 048
     Dates: start: 20210409, end: 20210823
  6. PREDNISONE ACETATE [Concomitant]
     Active Substance: PREDNISONE ACETATE
     Indication: CHRONIC KIDNEY DISEASE
     Dosage: 50.000 MG, QD
     Route: 048
     Dates: start: 20210409, end: 20210823

REACTIONS (1)
  - Liver injury [Recovered/Resolved]

NARRATIVE: CASE EVENT DATE: 20210808
